FAERS Safety Report 12058398 (Version 3)
Quarter: 2016Q2

REPORT INFORMATION
  Report Type: Report from Study
  Country: AU (occurrence: AU)
  Receive Date: 20160210
  Receipt Date: 20160620
  Transmission Date: 20160815
  Serious: Yes (Other)
  Sender: FDA-Public Use
  Company Number: AU-ROCHE-1689424

PATIENT
  Age: 72 Year
  Sex: Female

DRUGS (5)
  1. ACTONEL [Concomitant]
     Active Substance: RISEDRONATE SODIUM
     Indication: OSTEOPOROSIS
     Route: 048
     Dates: start: 20160116
  2. PANADOL [Concomitant]
     Active Substance: ACETAMINOPHEN
     Indication: BACK PAIN
     Dosage: 2 TABLETS 6 HOURLY
     Route: 048
  3. PANADOL [Concomitant]
     Active Substance: ACETAMINOPHEN
     Indication: RHEUMATOID ARTHRITIS
     Dosage: TDS
     Route: 048
     Dates: start: 201512
  4. ACTEMRA [Suspect]
     Active Substance: TOCILIZUMAB
     Indication: RHEUMATOID ARTHRITIS
     Dosage: ONGOING
     Route: 042
     Dates: start: 20150911
  5. TRAMAL [Concomitant]
     Active Substance: TRAMADOL
     Indication: PAIN
     Route: 065
     Dates: start: 201512

REACTIONS (4)
  - Furuncle [Recovering/Resolving]
  - Back pain [Unknown]
  - Spinal fracture [Recovering/Resolving]
  - Furuncle [Recovered/Resolved]

NARRATIVE: CASE EVENT DATE: 201511
